FAERS Safety Report 19422108 (Version 1)
Quarter: 2021Q2

REPORT INFORMATION
  Report Type: Spontaneous
  Country: US (occurrence: US)
  Receive Date: 20210616
  Receipt Date: 20210616
  Transmission Date: 20210717
  Serious: No
  Sender: FDA-Public Use
  Company Number: None

PATIENT
  Age: 32 Year
  Weight: 150.75 kg

DRUGS (5)
  1. TESTOSTERONE CYPIONATE. [Suspect]
     Active Substance: TESTOSTERONE CYPIONATE
     Indication: GENDER REASSIGNMENT THERAPY
     Dosage: ?          QUANTITY:1 INJECTION(S);OTHER FREQUENCY:ONCE WEEKLY;?
     Route: 058
     Dates: start: 20210512, end: 20210605
  2. VITAMIN D [Concomitant]
     Active Substance: VITAMIN D NOS
  3. MAGNESIUM [Concomitant]
     Active Substance: MAGNESIUM
  4. CALCIUM [Concomitant]
     Active Substance: CALCIUM
  5. VITAMIN B ? 12 [Concomitant]

REACTIONS (8)
  - Heart rate increased [None]
  - Blood pressure increased [None]
  - Dyspnoea [None]
  - Palpitations [None]
  - Sleep disorder [None]
  - Rash [None]
  - Injection site mass [None]
  - Injection site rash [None]

NARRATIVE: CASE EVENT DATE: 20210512
